FAERS Safety Report 24690185 (Version 4)
Quarter: 2024Q4

REPORT INFORMATION
  Report Type: Spontaneous
  Country: UY (occurrence: UY)
  Receive Date: 20241203
  Receipt Date: 20241219
  Transmission Date: 20250114
  Serious: Yes (Death, Other)
  Sender: ROCHE
  Company Number: UY-ROCHE-10000146082

PATIENT
  Age: 69 Year
  Sex: Male

DRUGS (13)
  1. RITUXIMAB [Suspect]
     Active Substance: RITUXIMAB
     Indication: Follicular lymphoma
     Dosage: 1ST LINE SYSTEMIC TREATMENT RCHOP
     Route: 065
     Dates: start: 201704, end: 201709
  2. RITUXIMAB [Suspect]
     Active Substance: RITUXIMAB
     Dosage: 2ND LINE SYSTEMIC TREATMENT BR
     Route: 065
     Dates: start: 202007, end: 202101
  3. RITUXIMAB [Suspect]
     Active Substance: RITUXIMAB
     Dosage: 4TH SYSTEMIC TREATMENT
     Route: 065
     Dates: start: 20241007, end: 20241031
  4. CYCLOPHOSPHAMIDE [Concomitant]
     Active Substance: CYCLOPHOSPHAMIDE
     Indication: Follicular lymphoma
     Dosage: 1ST LINE SYSTEMIC TREATMENT RCHOP
     Route: 065
     Dates: start: 201704, end: 201709
  5. DOXORUBICIN [Concomitant]
     Active Substance: DOXORUBICIN
     Indication: Follicular lymphoma
     Dosage: 1ST LINE SYSTEMIC TREATMENT RCHOP
     Route: 065
     Dates: start: 201704, end: 201709
  6. VINCRISTINE [Concomitant]
     Active Substance: VINCRISTINE
     Indication: Follicular lymphoma
     Dosage: 1ST LINE SYSTEMIC TREATMENT RCHOP
     Route: 065
     Dates: start: 201704, end: 201709
  7. PREDNISONE [Concomitant]
     Active Substance: PREDNISONE
     Indication: Follicular lymphoma
     Dosage: 1ST LINE SYSTEMIC TREATMENT RCHOP
     Route: 065
     Dates: start: 201704, end: 201709
  8. BENDAMUSTINE [Concomitant]
     Active Substance: BENDAMUSTINE
     Indication: Follicular lymphoma
     Dosage: 2ND LINE SYSTEMIC TREATMENT BR
     Route: 065
     Dates: start: 202007, end: 202101
  9. CARMUSTINE [Concomitant]
     Active Substance: CARMUSTINE
     Indication: Follicular lymphoma
     Dosage: 3RD LINE SYSTEMIC TREATMENT
     Route: 065
     Dates: start: 202103, end: 202103
  10. ETOPOSIDE [Concomitant]
     Active Substance: ETOPOSIDE
     Indication: Follicular lymphoma
     Dosage: 3RD LINE SYSTEMIC TREATMENT
     Route: 065
     Dates: start: 202103, end: 202103
  11. CYTARABINE [Concomitant]
     Active Substance: CYTARABINE
     Indication: Follicular lymphoma
     Dosage: 3RD LINE SYSTEMIC TREATMENT
     Route: 065
     Dates: start: 202103, end: 202103
  12. MELPHALAN [Concomitant]
     Active Substance: MELPHALAN
     Indication: Follicular lymphoma
     Dosage: 3RD LINE SYSTEMIC TREATMENT
     Route: 065
     Dates: start: 202103, end: 202103
  13. LENALIDOMIDE [Concomitant]
     Active Substance: LENALIDOMIDE
     Indication: Follicular lymphoma
     Dosage: 4TH SYSTEMIC TREATMENT
     Route: 065
     Dates: start: 20241007, end: 20241031

REACTIONS (5)
  - Rash [Unknown]
  - Renal failure [Unknown]
  - Disease progression [Unknown]
  - Eosinophilia [Unknown]
  - Infection [Fatal]

NARRATIVE: CASE EVENT DATE: 20241215
